FAERS Safety Report 4809276-X (Version None)
Quarter: 2005Q4

REPORT INFORMATION
  Report Type: 
  Country: None (occurrence: None)
  Receive Date: 20051021
  Receipt Date: 20051007
  Transmission Date: 20060501
  Serious: Yes (Life-Threatening)
  Sender: FDA-Public Use
  Company Number: TNZFR200500089

PATIENT
  Age: 94 Year
  Sex: Female
  Weight: 78 kg

DRUGS (4)
  1. INNOHEP [Suspect]
     Dosage: 14000 IU (14000 IU, ONCE DAILY), SUBCUTANEOUS
     Route: 058
     Dates: start: 20050601, end: 20050705
  2. ASPEGIC 1000 [Suspect]
     Dosage: 100 MG (100 MG, ONCE DAILY), ORAL
     Route: 048
     Dates: start: 20040501, end: 20050701
  3. COUMADIN [Suspect]
     Dosage: 2 MG (2 MG, ONCE DAILY), ORAL
     Route: 048
     Dates: start: 20050701, end: 20050707
  4. EFFEXOR [Suspect]
     Indication: DEPRESSION
     Dosage: 50 MG (50 MG, ONCE DAILY), ORAL
     Route: 048
     Dates: start: 20040501

REACTIONS (4)
  - ANAEMIA [None]
  - DRUG INTERACTION [None]
  - HAEMATOMA [None]
  - RECTAL HAEMORRHAGE [None]
